FAERS Safety Report 22190736 (Version 1)
Quarter: 2023Q2

REPORT INFORMATION
  Report Type: Spontaneous
  Country: US (occurrence: None)
  Receive Date: 20230405
  Receipt Date: 20230405
  Transmission Date: 20230722
  Serious: Yes (Hospitalization)
  Sender: FDA-Public Use
  Company Number: None

PATIENT
  Age: 31 Year
  Weight: 67.2 kg

DRUGS (1)
  1. LEFLUNOMIDE [Suspect]
     Active Substance: LEFLUNOMIDE

REACTIONS (7)
  - Acute kidney injury [None]
  - Headache [None]
  - Hypertension [None]
  - Sinusitis [None]
  - Inadequate analgesia [None]
  - Therapy interrupted [None]
  - Drug resistance [None]

NARRATIVE: CASE EVENT DATE: 20230127
